FAERS Safety Report 6426897-1 (Version None)
Quarter: 2009Q4

REPORT INFORMATION
  Report Type: 
  Country: None (occurrence: None)
  Receive Date: 20091104
  Receipt Date: 20091027
  Transmission Date: 20100525
  Serious: Yes (Death)
  Sender: FDA-Public Use
  Company Number: TR-GENENTECH-291963

PATIENT

DRUGS (1)
  1. RITUXAN [Suspect]
     Indication: LYMPHOMA

REACTIONS (1)
  - ENTEROVIRUS INFECTION [None]
